FAERS Safety Report 19947234 (Version 1)
Quarter: 2021Q4

REPORT INFORMATION
  Report Type: Spontaneous
  Country: JP (occurrence: JP)
  Receive Date: 20211012
  Receipt Date: 20211012
  Transmission Date: 20220303
  Serious: Yes (Other)
  Sender: FDA-Public Use
  Company Number: JP-ABBVIE-21K-087-4107464-00

PATIENT
  Age: 61 Year
  Sex: Female
  Weight: 61 kg

DRUGS (13)
  1. SEVOFLURANE [Suspect]
     Active Substance: SEVOFLURANE
     Indication: Maintenance of anaesthesia
     Route: 065
  2. LEVOBUPIVACAINE HYDROCHLORIDE [Suspect]
     Active Substance: LEVOBUPIVACAINE HYDROCHLORIDE
     Indication: Nerve block
     Dosage: LEFT FEMORAL NERVE BLOCK 20ML AND SCIATIC?NERVE BLOCK 10ML
     Route: 061
  3. LEVOBUPIVACAINE HYDROCHLORIDE [Suspect]
     Active Substance: LEVOBUPIVACAINE HYDROCHLORIDE
     Dosage: LEFT FEMORAL NERVE BLOCK 20ML AND SCIATIC?NERVE BLOCK 10ML
     Route: 061
  4. LEVOBUPIVACAINE HYDROCHLORIDE [Suspect]
     Active Substance: LEVOBUPIVACAINE HYDROCHLORIDE
     Dosage: LEFT FEMORAL NERVE BLOCK 20ML AND SCIATIC?NERVE BLOCK 10ML
     Route: 061
  5. LEVOBUPIVACAINE HYDROCHLORIDE [Suspect]
     Active Substance: LEVOBUPIVACAINE HYDROCHLORIDE
     Dosage: LEFT FEMORAL NERVE BLOCK 20ML AND SCIATIC?NERVE BLOCK 10ML
     Route: 061
  6. ROCURONIUM [Suspect]
     Active Substance: ROCURONIUM BROMIDE
     Indication: Induction of anaesthesia
     Route: 065
  7. ROCURONIUM [Suspect]
     Active Substance: ROCURONIUM BROMIDE
     Route: 065
  8. VALSARTAN [Concomitant]
     Active Substance: VALSARTAN
     Indication: Product used for unknown indication
  9. PROPOFOL [Concomitant]
     Active Substance: PROPOFOL
     Indication: Induction of anaesthesia
     Route: 065
  10. PROPOFOL [Concomitant]
     Active Substance: PROPOFOL
     Route: 065
  11. FENTANYL CITRATE [Concomitant]
     Active Substance: FENTANYL CITRATE
     Indication: Induction of anaesthesia
     Route: 065
  12. HEPARIN SODIUM [Concomitant]
     Active Substance: HEPARIN SODIUM
     Indication: Musculoskeletal disorder
  13. CEFAZOLIN SODIUM [Concomitant]
     Active Substance: CEFAZOLIN SODIUM
     Indication: Antibiotic prophylaxis

REACTIONS (1)
  - Anaphylactic shock [Recovered/Resolved]
